FAERS Safety Report 7203821-5 (Version None)
Quarter: 2010Q4

REPORT INFORMATION
  Report Type: 
  Country: None (occurrence: None)
  Receive Date: 20101217
  Receipt Date: 20101203
  Transmission Date: 20110411
  Serious: Yes (Hospitalization, Other)
  Sender: FDA-Public Use
  Company Number: ACO_20782_2010

PATIENT
  Age: 63 Year
  Sex: Female

DRUGS (13)
  1. AMPYRA [Suspect]
     Indication: GAIT DISTURBANCE
     Dosage: 10MG, BID, ORAL
     Route: 048
     Dates: start: 20100501, end: 20101025
  2. ASPIRIN [Concomitant]
  3. BACLOFEN [Concomitant]
  4. CALCIUM WITH VITAMIN D (CALCIUM CARBONATE, COLECALCIFEROL) [Concomitant]
  5. ZETIA [Concomitant]
  6. SINGULAIR [Concomitant]
  7. MULTIVITAMIN (EVITAMIN NOS) [Concomitant]
  8. BENICAR [Concomitant]
  9. PRILOSEC (OMEPRAZOLE) [Concomitant]
  10. REQUIP [Concomitant]
  11. SENOKOT (SENNA ALEXANDRINA) [Concomitant]
  12. SIMVASTATIN [Concomitant]
  13. COLACE (DOCUSATE SODIUM) [Concomitant]

REACTIONS (5)
  - LYME DISEASE [None]
  - MEMORY IMPAIRMENT [None]
  - MENTAL DISORDER [None]
  - NEURITIS [None]
  - PERSONALITY CHANGE [None]
